FAERS Safety Report 6779217-7 (Version None)
Quarter: 2010Q2

REPORT INFORMATION
  Report Type: 
  Country: None (occurrence: None)
  Receive Date: 20100618
  Receipt Date: 20100603
  Transmission Date: 20101027
  Serious: No
  Sender: FDA-Public Use
  Company Number: A0845709A

PATIENT
  Age: 53 Year
  Sex: Male
  Weight: 86.4 kg

DRUGS (8)
  1. PROMACTA [Suspect]
     Indication: IDIOPATHIC THROMBOCYTOPENIC PURPURA
     Dosage: 25MG UNKNOWN
     Route: 048
     Dates: start: 20100101, end: 20100219
  2. MOISTURIZER [Concomitant]
  3. ALDACTONE [Concomitant]
     Indication: PORTAL HYPERTENSION
     Dosage: 100MG PER DAY
  4. PROTONIX [Concomitant]
     Indication: PORTAL HYPERTENSION
     Dosage: 40MG PER DAY
  5. BACTRIM [Concomitant]
     Indication: PORTAL HYPERTENSION
  6. NADOLOL [Concomitant]
     Indication: PORTAL HYPERTENSION
     Dosage: 40MG PER DAY
  7. CELEXA [Concomitant]
     Indication: DEPRESSION
     Dosage: 20MG PER DAY
  8. ROMIPLOSTIM [Concomitant]

REACTIONS (5)
  - DRUG INEFFECTIVE [None]
  - ERYTHEMA [None]
  - PLATELET COUNT DECREASED [None]
  - RASH [None]
  - SKIN EXFOLIATION [None]
